FAERS Safety Report 25059987 (Version 3)
Quarter: 2025Q4

REPORT INFORMATION
  Report Type: Report from Study
  Country: US (occurrence: US)
  Receive Date: 20250310
  Receipt Date: 20251030
  Transmission Date: 20260118
  Serious: Yes (Hospitalization)
  Sender: ABBVIE
  Company Number: US-ABBVIE-6161039

PATIENT
  Age: 51 Year
  Sex: Female

DRUGS (2)
  1. RINVOQ [Suspect]
     Active Substance: UPADACITINIB
     Indication: Rheumatoid arthritis
     Route: 048
     Dates: start: 20211201
  2. RINVOQ [Suspect]
     Active Substance: UPADACITINIB
     Indication: Rheumatoid arthritis
     Route: 048

REACTIONS (13)
  - Ovarian mass [Not Recovered/Not Resolved]
  - Pneumonia [Recovered/Resolved]
  - Inflammation [Recovered/Resolved]
  - Renal impairment [Recovered/Resolved]
  - Diverticulitis [Not Recovered/Not Resolved]
  - Depression [Unknown]
  - Sepsis [Recovered/Resolved]
  - Oophoritis [Not Recovered/Not Resolved]
  - Emotional disorder [Recovered/Resolved]
  - Musculoskeletal disorder [Recovered/Resolved]
  - Gait disturbance [Unknown]
  - Hypertension [Recovered/Resolved]
  - Memory impairment [Recovered/Resolved]

NARRATIVE: CASE EVENT DATE: 20240101
